FAERS Safety Report 8222725-2 (Version None)
Quarter: 2012Q1

REPORT INFORMATION
  Report Type: 
  Country: None (occurrence: None)
  Receive Date: 20120320
  Receipt Date: 20120308
  Transmission Date: 20120608
  Serious: Yes (Hospitalization)
  Sender: FDA-Public Use
  Company Number: DE-ELI_LILLY_AND_COMPANY-DE201203002474

PATIENT
  Sex: Female

DRUGS (6)
  1. IBEROGAST [Concomitant]
  2. CALCIUM CARBONATE [Concomitant]
  3. VITAMIN D [Concomitant]
     Dosage: UNK, BID
  4. FORTEO [Suspect]
     Indication: OSTEOPOROSIS
     Dosage: UNK, QD
     Route: 058
     Dates: start: 20100921
  5. METOCLOPRAMIDE [Concomitant]
     Dosage: UNK, PRN
  6. KORODIN [Concomitant]

REACTIONS (3)
  - CONTUSION [None]
  - FALL [None]
  - LACERATION [None]
